FAERS Safety Report 4660925-9 (Version None)
Quarter: 2005Q2

REPORT INFORMATION
  Report Type: 
  Country: None (occurrence: None)
  Receive Date: 20050511
  Receipt Date: 20050426
  Transmission Date: 20051028
  Serious: Yes (Hospitalization)
  Sender: FDA-Public Use
  Company Number: 2005-01176

PATIENT
  Age: 44 Year
  Sex: Female
  Weight: 49.4 kg

DRUGS (7)
  1. HYDROCODONE BITARTRATE + ACETAMINOPHEN [Suspect]
     Indication: ANALGESIC EFFECT
     Dosage: 1 TABLET, QID,ORAL
     Route: 048
     Dates: start: 20040501, end: 20050331
  2. HYDROCODONE BITARTRATE + ACETAMINOPHEN [Suspect]
     Indication: ANALGESIC EFFECT
     Dosage: 1 TABLET, QID,ORAL
     Route: 048
     Dates: start: 20050401, end: 20050430
  3. HYDROCODONE BITARTRATE + ACETAMINOPHEN [Suspect]
     Indication: ANALGESIC EFFECT
     Dosage: 1 TABLET, QID,ORAL
     Route: 048
     Dates: start: 20050501
  4. HYDROCODONE BITARTRATE AND ACETAMINOPHEN [Suspect]
  5. ALPRAZOLAM [Suspect]
     Indication: MUSCLE SPASMS
     Dosage: 1 TABLET, TID, ORAL
     Route: 048
     Dates: start: 20040501
  6. METHOCARBAMOL (METHOCARBAMOL, METHOCARBAMOL) TABLET [Concomitant]
  7. ZYRTEC [Concomitant]

REACTIONS (15)
  - BLOOD PRESSURE INCREASED [None]
  - CHEST PAIN [None]
  - CORNEAL DISORDER [None]
  - DRUG ADMINISTRATION ERROR [None]
  - DRUG INEFFECTIVE [None]
  - DRUG TOLERANCE [None]
  - ERYTHEMA OF EYELID [None]
  - EYELID OEDEMA [None]
  - INCREASED UPPER AIRWAY SECRETION [None]
  - MALAISE [None]
  - MEDICATION TAMPERING [None]
  - OCULAR HYPERAEMIA [None]
  - PHARMACEUTICAL PRODUCT COMPLAINT [None]
  - PHARYNGOLARYNGEAL PAIN [None]
  - PRURITUS [None]
